FAERS Safety Report 7280035-4 (Version None)
Quarter: 2011Q1

REPORT INFORMATION
  Report Type: 
  Country: None (occurrence: None)
  Receive Date: 20110203
  Receipt Date: 20110203
  Transmission Date: 20110831
  Serious: Yes (Other)
  Sender: FDA-Public Use
  Company Number: None

PATIENT
  Age: 62 Year
  Sex: Male
  Weight: 81.6475 kg

DRUGS (1)
  1. DIOVAN [Suspect]
     Indication: HYPERTENSION
     Dosage: 160 MG ONCE A DAY PO
     Route: 048

REACTIONS (3)
  - COUGH [None]
  - REACTION TO DRUG EXCIPIENTS [None]
  - PRODUCT COLOUR ISSUE [None]
